FAERS Safety Report 5312862-4 (Version None)
Quarter: 2007Q1

REPORT INFORMATION
  Report Type: 
  Country: None (occurrence: None)
  Receive Date: 20070201
  Receipt Date: 20061226
  Transmission Date: 20070707
  Serious: No
  Sender: FDA-Public Use
  Company Number: 259522

PATIENT
  Age: 66 Year
  Sex: Female
  Weight: 88 kg

DRUGS (4)
  1. NOVOLOG [Suspect]
     Indication: INSULIN-REQUIRING TYPE II DIABETES MELLITUS
     Dosage: SLIDING SCALE IU, QID, SUBCUTANEOUS
     Route: 058
     Dates: start: 20060701
  2. LEVEMIR [Suspect]
     Indication: INSULIN-REQUIRING TYPE II DIABETES MELLITUS
     Dosage: 12 IU,QD, SUBCUTANEOUS
     Route: 058
  3. SYNTHROID [Concomitant]
  4. AMOXICILLIN [Suspect]
     Indication: TOOTH DISORDER
     Dosage: 500 MG, TID, ORAL
     Route: 048
     Dates: start: 20061211, end: 20061221

REACTIONS (1)
  - HYPERSENSITIVITY [None]
